FAERS Safety Report 6679966-5 (Version None)
Quarter: 2010Q2

REPORT INFORMATION
  Report Type: 
  Country: None (occurrence: None)
  Receive Date: 20100413
  Receipt Date: 20100402
  Transmission Date: 20101027
  Serious: Yes (Hospitalization)
  Sender: FDA-Public Use
  Company Number: US-BAXTER-2010BH008068

PATIENT
  Age: 42 Year
  Sex: Female

DRUGS (1)
  1. DIANEAL [Suspect]
     Indication: PERITONEAL DIALYSIS
     Route: 033
     Dates: start: 20100309, end: 20100323

REACTIONS (3)
  - DIAPHRAGMATIC RUPTURE [None]
  - FLUID OVERLOAD [None]
  - PLEURAL EFFUSION [None]
